FAERS Safety Report 10663841 (Version 2)
Quarter: 2014Q4

REPORT INFORMATION
  Report Type: Spontaneous
  Country: IT (occurrence: IT)
  Receive Date: 20141219
  Receipt Date: 20141219
  Transmission Date: 20150529
  Serious: Yes (Hospitalization)
  Sender: FDA-Public Use
  Company Number: IT-RANBAXY-2012R1-59726

PATIENT
  Age: 84 Year
  Sex: Female

DRUGS (3)
  1. RISPERIDONE. [Suspect]
     Active Substance: RISPERIDONE
     Indication: DISORIENTATION
     Dosage: 2 MG, DAILY
     Route: 065
  2. RISPERIDONE. [Suspect]
     Active Substance: RISPERIDONE
     Indication: PSYCHOMOTOR HYPERACTIVITY
  3. RISPERIDONE. [Suspect]
     Active Substance: RISPERIDONE
     Indication: DISORIENTATION

REACTIONS (3)
  - Chest injury [Unknown]
  - Rib fracture [Unknown]
  - Pulmonary embolism [Unknown]
